FAERS Safety Report 6769470-8 (Version None)
Quarter: 2010Q2

REPORT INFORMATION
  Report Type: 
  Country: None (occurrence: None)
  Receive Date: 20100615
  Receipt Date: 20100609
  Transmission Date: 20101027
  Serious: Yes (Other)
  Sender: FDA-Public Use
  Company Number: CA-BRISTOL-MYERS SQUIBB COMPANY-15080237

PATIENT
  Age: 52 Year
  Sex: Female

DRUGS (10)
  1. ORENCIA [Suspect]
     Indication: RHEUMATOID ARTHRITIS
     Dosage: INTERRUPTED ON 06JAN2010
     Route: 042
     Dates: start: 20090115
  2. METHOTREXATE [Concomitant]
     Indication: RHEUMATOID ARTHRITIS
  3. LIPITOR [Concomitant]
  4. NORVASC [Concomitant]
  5. HYDROCHLOROTHIAZIDE [Concomitant]
  6. NEXIUM [Concomitant]
  7. VALTREX [Concomitant]
  8. IRON TABLETS [Concomitant]
  9. VITAMINS [Concomitant]
  10. FOLIC ACID [Concomitant]

REACTIONS (1)
  - POSTOPERATIVE WOUND INFECTION [None]
